FAERS Safety Report 5186511-2 (Version None)
Quarter: 2006Q4

REPORT INFORMATION
  Report Type: 
  Country: None (occurrence: None)
  Receive Date: 20061213
  Receipt Date: 20061128
  Transmission Date: 20070319
  Serious: Yes (Life-Threatening, Hospitalization)
  Sender: FDA-Public Use
  Company Number: SPV1-2006-02021

PATIENT
  Age: 29 Year
  Sex: Female
  Weight: 50 kg

DRUGS (1)
  1. CARBAMAZEPINE [Suspect]
     Dosage: 20 G X 1,

REACTIONS (6)
  - COMA [None]
  - DELIRIUM [None]
  - HAEMODIALYSIS [None]
  - ILEUS [None]
  - INTESTINAL OBSTRUCTION [None]
  - OVERDOSE [None]
